FAERS Safety Report 9623526 (Version 1)
Quarter: 2013Q4

REPORT INFORMATION
  Report Type: Spontaneous
  Country: US (occurrence: US)
  Receive Date: 20131015
  Receipt Date: 20131015
  Transmission Date: 20140711
  Serious: No
  Sender: FDA-Public Use
  Company Number: US-PURDUE-USA-2012-0088910

PATIENT
  Sex: Male

DRUGS (2)
  1. BUTRANS [Suspect]
     Indication: PAIN
     Dosage: 10 MCG/HR, UNK
     Route: 062
     Dates: start: 201204, end: 20120518
  2. OXYCODONE HCL CR TABLETS (SIMILAR TO NDA 20-553) [Concomitant]
     Indication: BREAKTHROUGH PAIN
     Dosage: 10 MG, PRN

REACTIONS (7)
  - Feeling hot [Recovered/Resolved]
  - Drug administered at inappropriate site [Recovered/Resolved]
  - Dizziness [Recovered/Resolved]
  - Hyperhidrosis [Unknown]
  - Nausea [Recovered/Resolved]
  - Product adhesion issue [Unknown]
  - Application site warmth [Unknown]
